FAERS Safety Report 4285670-3 (Version None)
Quarter: 2004Q1

REPORT INFORMATION
  Report Type: 
  Country: None (occurrence: None)
  Receive Date: 20040204
  Receipt Date: 20040204
  Transmission Date: 20041129
  Serious: Yes (Other)
  Sender: FDA-Public Use
  Company Number: None

PATIENT
  Age: 33 Year
  Sex: Female
  Weight: 61.2356 kg

DRUGS (3)
  1. ZOLOFT [Suspect]
     Indication: ANXIETY
     Dosage: 200/MG ONCE DAILY ORAL
     Route: 048
     Dates: start: 20020901, end: 20040103
  2. ZOLOFT [Suspect]
     Indication: DEPRESSION
     Dosage: 200/MG ONCE DAILY ORAL
     Route: 048
     Dates: start: 20020901, end: 20040103
  3. ZOLOFT [Suspect]
     Indication: ANXIETY
     Dosage: 15/MG 3 TIMES ORAL
     Route: 048
     Dates: start: 20010901, end: 20040103

REACTIONS (10)
  - ACTIVITIES OF DAILY LIVING IMPAIRED [None]
  - ANOREXIA [None]
  - APATHY [None]
  - DYSKINESIA [None]
  - DYSPHEMIA [None]
  - EMOTIONAL DISORDER [None]
  - HYPERHIDROSIS [None]
  - TREMOR [None]
  - VISUAL DISTURBANCE [None]
  - WEIGHT DECREASED [None]
